FAERS Safety Report 5213378-6 (Version None)
Quarter: 2007Q1

REPORT INFORMATION
  Report Type: 
  Country: None (occurrence: None)
  Receive Date: 20070119
  Receipt Date: 20061027
  Transmission Date: 20070707
  Serious: No
  Sender: FDA-Public Use
  Company Number: US-GLAXOSMITHKLINE-A0623420A

PATIENT

DRUGS (1)
  1. ARIXTRA [Suspect]
     Route: 058

REACTIONS (1)
  - INJECTION SITE URTICARIA [None]
